FAERS Safety Report 18168794 (Version 1)
Quarter: 2020Q3

REPORT INFORMATION
  Report Type: Spontaneous
  Country: US (occurrence: US)
  Receive Date: 20200818
  Receipt Date: 20200818
  Transmission Date: 20201103
  Serious: No
  Sender: FDA-Public Use
  Company Number: None

PATIENT
  Sex: Female

DRUGS (1)
  1. LEVETIRACETAM TABS 500MG [Suspect]
     Active Substance: LEVETIRACETAM

REACTIONS (1)
  - Drug intolerance [None]
